FAERS Safety Report 5966157-6 (Version None)
Quarter: 2008Q4

REPORT INFORMATION
  Report Type: 
  Country: None (occurrence: None)
  Receive Date: 20081125
  Receipt Date: 20081113
  Transmission Date: 20090506
  Serious: No
  Sender: FDA-Public Use
  Company Number: US-JNJFOC-20081103878

PATIENT
  Sex: Female
  Weight: 86.18 kg

DRUGS (1)
  1. DURAGESIC-100 [Suspect]
     Indication: ARTHRITIS
     Route: 062

REACTIONS (1)
  - DRUG ADMINISTRATION ERROR [None]
